FAERS Safety Report 16210473 (Version 9)
Quarter: 2020Q4

REPORT INFORMATION
  Report Type: Report from Study
  Country: CO (occurrence: CO)
  Receive Date: 20190418
  Receipt Date: 20201006
  Transmission Date: 20210113
  Serious: Yes (Hospitalization, Other)
  Sender: FDA-Public Use
  Company Number: PHHY2017CO174038

PATIENT
  Age: 42 Year
  Sex: Female
  Weight: 69 kg

DRUGS (6)
  1. VOTRIENT [Suspect]
     Active Substance: PAZOPANIB HYDROCHLORIDE
     Dosage: 400 MG, QD
     Route: 048
  2. VOTRIENT [Suspect]
     Active Substance: PAZOPANIB HYDROCHLORIDE
     Dosage: 800 MG, QD
     Route: 048
  3. VOTRIENT [Suspect]
     Active Substance: PAZOPANIB HYDROCHLORIDE
     Indication: SOFT TISSUE SARCOMA
     Dosage: 800 MG, QD
     Route: 048
     Dates: start: 20171115
  4. VOTRIENT [Suspect]
     Active Substance: PAZOPANIB HYDROCHLORIDE
     Dosage: 400 MG, QD
     Route: 048
  5. ACETAMINOPHEN. [Concomitant]
     Active Substance: ACETAMINOPHEN
     Indication: PRODUCT USED FOR UNKNOWN INDICATION
     Dosage: UNK
     Route: 065
  6. OMEPRAZOLE. [Concomitant]
     Active Substance: OMEPRAZOLE
     Indication: PRODUCT USED FOR UNKNOWN INDICATION
     Dosage: UNK
     Route: 065

REACTIONS (25)
  - Soft tissue sarcoma [Unknown]
  - Bone pain [Unknown]
  - Abdominal distension [Unknown]
  - Diarrhoea haemorrhagic [Unknown]
  - Magnetic resonance imaging abnormal [Unknown]
  - Dehydration [Unknown]
  - Pyrexia [Unknown]
  - Gastric cancer [Unknown]
  - Diarrhoea [Unknown]
  - Drug intolerance [Unknown]
  - Haemorrhage [Unknown]
  - Skin exfoliation [Unknown]
  - Headache [Unknown]
  - Diarrhoea [Recovered/Resolved]
  - Asthenia [Unknown]
  - Wound [Not Recovered/Not Resolved]
  - Pain [Unknown]
  - Fatigue [Unknown]
  - Malaise [Unknown]
  - Nausea [Unknown]
  - Feeling abnormal [Unknown]
  - Vomiting [Unknown]
  - Lymphadenopathy [Unknown]
  - Recurrent cancer [Unknown]
  - Abdominal pain [Unknown]

NARRATIVE: CASE EVENT DATE: 20171117
